FAERS Safety Report 9225722 (Version 1)
Quarter: 2013Q2

REPORT INFORMATION
  Report Type: Spontaneous
  Country: AU (occurrence: AU)
  Receive Date: 20130411
  Receipt Date: 20130411
  Transmission Date: 20140414
  Serious: Yes (Disabling)
  Sender: FDA-Public Use
  Company Number: AU-GLAXOSMITHKLINE-B0875780A

PATIENT
  Age: 31 Year
  Sex: Male
  Weight: 82 kg

DRUGS (2)
  1. IMIGRAN [Suspect]
     Indication: MIGRAINE
     Dosage: 25MG TWICE PER DAY
     Route: 048
     Dates: start: 20130222
  2. ESCITALOPRAM [Concomitant]
     Dosage: 10MG PER DAY

REACTIONS (5)
  - Mental disorder [Recovering/Resolving]
  - Muscle spasms [Recovering/Resolving]
  - Somnolence [Recovering/Resolving]
  - Vomiting [Unknown]
  - Incorrect dose administered [Unknown]
